FAERS Safety Report 8395128-8 (Version None)
Quarter: 2012Q1

REPORT INFORMATION
  Report Type: 
  Country: None (occurrence: None)
  Receive Date: 20120323
  Receipt Date: 20110317
  Transmission Date: 20120608
  Serious: Yes (Other)
  Sender: FDA-Public Use
  Company Number: 163-21880-11030227

PATIENT
  Age: 58 Year
  Sex: Female

DRUGS (2)
  1. REVLIMID [Suspect]
     Indication: MULTIPLE MYELOMA
     Dosage: 10 MG, DAILY FOR 14 DAYS, PO ; 10 MG, DAILY FOR 14 DAYS, PO
     Route: 048
     Dates: start: 20100824, end: 20101007
  2. REVLIMID [Suspect]
     Indication: MULTIPLE MYELOMA
     Dosage: 10 MG, DAILY FOR 14 DAYS, PO ; 10 MG, DAILY FOR 14 DAYS, PO
     Route: 048
     Dates: start: 20110201

REACTIONS (2)
  - RASH PRURITIC [None]
  - HERPES ZOSTER [None]
